FAERS Safety Report 4628297-3 (Version None)
Quarter: 2005Q2

REPORT INFORMATION
  Report Type: 
  Country: None (occurrence: None)
  Receive Date: 20050401
  Receipt Date: 20050318
  Transmission Date: 20051028
  Serious: Yes (Other)
  Sender: FDA-Public Use
  Company Number: 0500010EN0020P

PATIENT
  Age: 9 Year
  Sex: Male

DRUGS (5)
  1. ONCASPAR [Suspect]
     Indication: ACUTE LYMPHOCYTIC LEUKAEMIA
     Dosage: 2375 IU IM
     Route: 030
     Dates: start: 20010708, end: 20031111
  2. VINCRISTINE [Suspect]
     Indication: ACUTE LYMPHOCYTIC LEUKAEMIA
     Dosage: 54 MG/M2
     Dates: start: 20010708, end: 20031111
  3. DOXORUBICIN HCL [Suspect]
     Indication: ACUTE LYMPHOCYTIC LEUKAEMIA
     Dosage: 75 MG/M2 IV
     Route: 042
     Dates: start: 20010708, end: 20031111
  4. CYCLOPHOSPHAMIDE [Suspect]
     Indication: ACUTE LYMPHOCYTIC LEUKAEMIA
     Dosage: 930 MG/M2 IV
     Route: 042
     Dates: start: 20010708, end: 20031111
  5. METHOTREXATE [Suspect]
     Indication: ACUTE LYMPHOCYTIC LEUKAEMIA
     Dosage: 216 MG IT
     Route: 038
     Dates: start: 20010708, end: 20031111

REACTIONS (1)
  - ACUTE MYELOID LEUKAEMIA [None]
